FAERS Safety Report 4618737-8 (Version None)
Quarter: 2005Q1

REPORT INFORMATION
  Report Type: 
  Country: None (occurrence: None)
  Receive Date: 20050323
  Receipt Date: 20050309
  Transmission Date: 20050727
  Serious: Yes (Other)
  Sender: FDA-Public Use
  Company Number: USA050392748

PATIENT
  Age: 58 Year
  Sex: Male

DRUGS (16)
  1. HUMULIN N [Suspect]
     Dosage: 220 U DAY
     Dates: start: 19950101
  2. HUMULIN R [Suspect]
     Dosage: 280 U DAY
     Dates: start: 19950101
  3. BUMEX [Concomitant]
  4. VICODIN [Concomitant]
  5. NEURONTIN [Concomitant]
  6. TRENTAL [Concomitant]
  7. ALDACTONE [Concomitant]
  8. NITROSTAT [Concomitant]
  9. POTASSIUM CHLORIDE [Concomitant]
  10. ATROVENT [Concomitant]
  11. VENTOLIN(SALBUTAMOL SULFATE) [Concomitant]
  12. ALBUTEROL [Concomitant]
  13. GLUCOPHAGE [Concomitant]
  14. MAXZIDE [Concomitant]
  15. DIABETA [Concomitant]
  16. CORTISPORIN CREAM [Concomitant]

REACTIONS (11)
  - BLOOD GLUCOSE FLUCTUATION [None]
  - CARDIAC DISORDER [None]
  - CEREBROVASCULAR ACCIDENT [None]
  - DIABETIC BULLOSIS [None]
  - DIABETIC NEPHROPATHY [None]
  - DIABETIC NEUROPATHY [None]
  - FLUID RETENTION [None]
  - NAIL DISCOLOURATION [None]
  - PHARMACEUTICAL PRODUCT COMPLAINT [None]
  - RENAL DISORDER [None]
  - SWELLING [None]
